FAERS Safety Report 9252957 (Version 1)
Quarter: 2013Q2

REPORT INFORMATION
  Report Type: Spontaneous
  Country: HR (occurrence: HR)
  Receive Date: 20130424
  Receipt Date: 20130424
  Transmission Date: 20140414
  Serious: Yes (Hospitalization)
  Sender: FDA-Public Use
  Company Number: HR-TEVA-398880ISR

PATIENT
  Age: 66 Year
  Sex: Male

DRUGS (2)
  1. PRAXITEN [Suspect]
     Indication: SLEEP DISORDER
     Dosage: 30 MILLIGRAM DAILY;
     Route: 048
     Dates: start: 2008, end: 20130304
  2. AMLOPIN [Concomitant]
     Dosage: 5 MILLIGRAM DAILY;
     Dates: start: 1998

REACTIONS (3)
  - Nightmare [Recovered/Resolved]
  - Asthenia [Recovered/Resolved]
  - Fall [Recovered/Resolved]
